FAERS Safety Report 9865642 (Version 1)
Quarter: 2014Q1

REPORT INFORMATION
  Report Type: Spontaneous
  Country: US (occurrence: US)
  Receive Date: 20140203
  Receipt Date: 20140203
  Transmission Date: 20141002
  Serious: No
  Sender: FDA-Public Use
  Company Number: US-ALLERGAN-1306215US

PATIENT
  Age: 48 Year
  Sex: Female

DRUGS (6)
  1. RESTASIS [Suspect]
     Indication: DRY EYE
     Dosage: 2 GTT, BID
     Route: 047
     Dates: start: 20130424, end: 20130424
  2. PREMARIN                           /00073001/ [Concomitant]
     Indication: HORMONE REPLACEMENT THERAPY
     Dosage: 0.9 MG, QD
     Route: 048
  3. VITAMIN B12                        /00056201/ [Concomitant]
     Indication: PRODUCT USED FOR UNKNOWN INDICATION
     Dosage: UNK
     Route: 048
  4. VITAMIN D                          /00107901/ [Concomitant]
     Indication: PRODUCT USED FOR UNKNOWN INDICATION
     Dosage: UNK
     Route: 048
  5. FISH OIL [Concomitant]
     Indication: PRODUCT USED FOR UNKNOWN INDICATION
     Dosage: UNK
     Route: 048
  6. REFRESH PLUS [Concomitant]
     Indication: DRY EYE
     Dosage: 4 TIMES PER DAY
     Route: 047

REACTIONS (1)
  - Eye irritation [Recovered/Resolved]
